FAERS Safety Report 18443606 (Version 4)
Quarter: 2021Q1

REPORT INFORMATION
  Report Type: Spontaneous
  Country: GB (occurrence: GB)
  Receive Date: 20201030
  Receipt Date: 20210222
  Transmission Date: 20210419
  Serious: Yes (Hospitalization)
  Sender: FDA-Public Use
  Company Number: GB-BIOGEN-2020BI00940621

PATIENT
  Sex: Female

DRUGS (1)
  1. PLEGRIDY [Suspect]
     Active Substance: PEGINTERFERON BETA-1A
     Indication: MULTIPLE SCLEROSIS
     Dosage: 125MCG / 0.5ML
     Route: 058
     Dates: start: 2018

REACTIONS (7)
  - Confusional state [Unknown]
  - Cystitis [Unknown]
  - Urinary incontinence [Unknown]
  - Feeling hot [Unknown]
  - Upper limb fracture [Unknown]
  - Fall [Recovered/Resolved]
  - Malaise [Unknown]
